FAERS Safety Report 15043548 (Version 1)
Quarter: 2018Q2

REPORT INFORMATION
  Report Type: Spontaneous
  Country: BE (occurrence: BE)
  Receive Date: 20180621
  Receipt Date: 20180621
  Transmission Date: 20180711
  Serious: Yes (Other)
  Sender: FDA-Public Use
  Company Number: BE-WEST-WARD PHARMACEUTICALS CORP.-BE-H14001-18-05121

PATIENT
  Age: 57 Year
  Sex: Male
  Weight: 81 kg

DRUGS (16)
  1. BEVACIZUMAB. [Suspect]
     Active Substance: BEVACIZUMAB
     Dosage: 30 CYCLES (1)
     Route: 042
     Dates: start: 20151124
  2. FOLAVIT [Concomitant]
     Active Substance: FOLIC ACID
     Indication: PROPHYLAXIS
     Dosage: ()
     Route: 065
  3. FLUOROURACIL. [Suspect]
     Active Substance: FLUOROURACIL
     Indication: COLORECTAL CANCER METASTATIC
     Dosage: 30 CYCLES (1)
     Route: 065
     Dates: start: 20151124
  4. FLUOROURACIL. [Suspect]
     Active Substance: FLUOROURACIL
     Dosage: (1)
     Route: 065
     Dates: start: 20170612
  5. D-CURE [Concomitant]
     Active Substance: CHOLECALCIFEROL
     Indication: PRODUCT USED FOR UNKNOWN INDICATION
     Dosage: ()
     Route: 065
  6. BEVACIZUMAB. [Suspect]
     Active Substance: BEVACIZUMAB
     Indication: COLORECTAL CANCER METASTATIC
     Dosage: (1)
     Route: 042
     Dates: start: 20170612
  7. ASAFLOW [Concomitant]
     Active Substance: ASPIRIN
     Indication: PROPHYLAXIS
     Dosage: ()
     Route: 065
  8. MITOSYL [Concomitant]
     Indication: PROPHYLAXIS
     Dosage: ()
     Route: 065
  9. LEUCOVORIN. [Suspect]
     Active Substance: LEUCOVORIN
     Indication: COLORECTAL CANCER METASTATIC
     Dosage: 30 CYCLES (1)
     Route: 065
     Dates: start: 20151124
  10. CARDIOASPIRINE [Concomitant]
     Active Substance: ASPIRIN
     Indication: PROPHYLAXIS
     Dosage: ()
     Route: 065
  11. CICAPLAST [Concomitant]
     Indication: PRODUCT USED FOR UNKNOWN INDICATION
     Dosage: ()
     Route: 065
  12. OMEPRAZOL [Concomitant]
     Active Substance: OMEPRAZOLE
     Indication: PROPHYLAXIS
     Dosage: ()
     Route: 065
  13. TASECTAN [Concomitant]
     Active Substance: GELATIN
     Indication: PRODUCT USED FOR UNKNOWN INDICATION
     Dosage: ()
     Route: 065
  14. LEUCOVORIN. [Suspect]
     Active Substance: LEUCOVORIN
     Dosage: (1)
     Route: 065
     Dates: start: 20170612
  15. IRINOTECAN [Suspect]
     Active Substance: IRINOTECAN
     Indication: COLORECTAL CANCER METASTATIC
     Dosage: (1)
     Route: 065
     Dates: start: 20170612
  16. IMODIUM [Concomitant]
     Active Substance: LOPERAMIDE HYDROCHLORIDE
     Indication: PRODUCT USED FOR UNKNOWN INDICATION
     Dosage: ()
     Route: 065

REACTIONS (12)
  - Cholestasis [Not Recovered/Not Resolved]
  - Hepatic enzyme abnormal [Not Recovered/Not Resolved]
  - Abdominal pain upper [Recovered/Resolved]
  - Pain in extremity [Recovered/Resolved]
  - Lung disorder [Recovered/Resolved]
  - Asthenia [Not Recovered/Not Resolved]
  - Dry skin [Not Recovered/Not Resolved]
  - Mucosal inflammation [Recovered/Resolved]
  - Anal fissure [Recovered/Resolved]
  - Insomnia [Recovered/Resolved]
  - Chest pain [Recovered/Resolved]
  - Rhinorrhoea [Not Recovered/Not Resolved]

NARRATIVE: CASE EVENT DATE: 20170727
